FAERS Safety Report 9620425 (Version 1)
Quarter: 2013Q4

REPORT INFORMATION
  Report Type: Spontaneous
  Country: US (occurrence: US)
  Receive Date: 20131015
  Receipt Date: 20131015
  Transmission Date: 20140711
  Serious: No
  Sender: FDA-Public Use
  Company Number: -SAAVPROD-BMS18929984

PATIENT
  Sex: Male

DRUGS (1)
  1. IRBESARTAN + HCTZ [Suspect]
     Indication: BLOOD PRESSURE

REACTIONS (1)
  - Pain in extremity [Unknown]
